FAERS Safety Report 7509594-0 (Version None)
Quarter: 2011Q2

REPORT INFORMATION
  Report Type: 
  Country: None (occurrence: None)
  Receive Date: 20110527
  Receipt Date: 20110522
  Transmission Date: 20111010
  Serious: Yes (Hospitalization)
  Sender: FDA-Public Use
  Company Number: US-US-EMD SERONO, INC.-7012919

PATIENT
  Sex: Female
  Weight: 86 kg

DRUGS (14)
  1. LIMBITROL DS [Concomitant]
     Indication: MIGRAINE
  2. LEVOXYL [Concomitant]
     Indication: HYPERTHYROIDISM
  3. ZETIA [Concomitant]
     Indication: BLOOD CHOLESTEROL INCREASED
  4. ULTRAM [Concomitant]
     Indication: MULTIPLE SCLEROSIS
     Dates: end: 20100101
  5. LIMBITROL [Concomitant]
     Indication: DEPRESSION
  6. VIVACTAL [Concomitant]
     Indication: MIGRAINE
  7. ALLEGRA [Concomitant]
     Indication: HYPERSENSITIVITY
  8. REBIF [Suspect]
     Route: 058
     Dates: start: 20100901
  9. LEXAPRO [Concomitant]
     Indication: DEPRESSION
  10. NEURONTIN [Concomitant]
     Indication: MULTIPLE SCLEROSIS
     Dates: end: 20100101
  11. REBIF [Suspect]
     Route: 058
     Dates: end: 20110101
  12. LYRICA [Concomitant]
     Indication: FIBROMYALGIA
  13. REBIF [Suspect]
     Indication: MULTIPLE SCLEROSIS
     Route: 058
     Dates: start: 20080731, end: 20100315
  14. PREVACID [Concomitant]
     Indication: DUODENAL ULCER

REACTIONS (6)
  - MIGRAINE [None]
  - HEADACHE [None]
  - INJECTION SITE HAEMATOMA [None]
  - INJECTION SITE ERYTHEMA [None]
  - POST LUMBAR PUNCTURE SYNDROME [None]
  - INTRACRANIAL HYPOTENSION [None]
